FAERS Safety Report 9026139 (Version 1)
Quarter: 2020Q3

REPORT INFORMATION
  Report Type: Spontaneous
  Country: DE (occurrence: None)
  Receive Date: 20130107
  Receipt Date: 20130107
  Transmission Date: 20201105
  Serious: Yes (Hospitalization, Disabling)
  Sender: FDA-Public Use
  Company Number: 2012-004541

PATIENT
  Age: 73 Year
  Sex: Female
  Weight: 116 kg

DRUGS (11)
  1. LASIX  /00032601/ (FUROSEMIDE) [Concomitant]
  2. CAPECITABINE. [Suspect]
     Active Substance: CAPECITABINE
     Indication: BREAST CANCER
     Dosage: (2000?0?2500)
     Route: 048
     Dates: start: 20080416
  3. VOLTAREN [Concomitant]
     Active Substance: DICLOFENAC SODIUM
  4. IRBESARTAN AND HYDROCHLOROTHIAZIDE [Suspect]
     Active Substance: HYDROCHLOROTHIAZIDE\IRBESARTAN
     Indication: HYPERTENSION
     Dosage: 2 DF ORALLY, DAILY.
  5. ARLEVERT (CINNARIZINE, DIMENHYDRINATE) [Concomitant]
  6. ENABLEX [Suspect]
     Active Substance: DARIFENACIN HYDROBROMIDE
     Indication: URGE INCONTINENCE
     Route: 048
  7. IBANDRONIC ACID. [Suspect]
     Active Substance: IBANDRONIC ACID
     Indication: BREAST CANCER
     Dosage: ONCE IN FOUR WEEKS
     Route: 042
     Dates: start: 20080415
  8. IBUPROFEN (IBUPROFEN) [Concomitant]
     Active Substance: IBUPROFEN
  9. ARIMIDEX [Concomitant]
     Active Substance: ANASTROZOLE
  10. METFORMIN [Suspect]
     Active Substance: METFORMIN HYDROCHLORIDE
     Indication: TYPE 2 DIABETES MELLITUS
     Route: 048
  11. ACC   /00082801/ (ACETYLCYSTEINE) [Concomitant]

REACTIONS (7)
  - Headache [None]
  - Radius fracture [None]
  - Nausea [None]
  - Concussion [None]
  - Abscess [None]
  - Fall [None]
  - Vertigo [None]

NARRATIVE: CASE EVENT DATE: 20080903
